FAERS Safety Report 24185831 (Version 1)
Quarter: 2024Q3

REPORT INFORMATION
  Report Type: Spontaneous
  Country: US (occurrence: US)
  Receive Date: 20240807
  Receipt Date: 20240807
  Transmission Date: 20241017
  Serious: Yes (Hospitalization, Other)
  Sender: BRISTOL MYERS SQUIBB
  Company Number: US-BRISTOL-MYERS SQUIBB COMPANY-2024-121575

PATIENT
  Age: 93 Year
  Sex: Male

DRUGS (1)
  1. LENALIDOMIDE [Suspect]
     Active Substance: LENALIDOMIDE
     Indication: Myelodysplastic syndrome
     Dosage: FREQUENCY: TAKE 1 CAPSULE BY MOUTH EVERY DAY
     Route: 048

REACTIONS (8)
  - Rash pruritic [Recovered/Resolved]
  - Back pain [Unknown]
  - Fatigue [Unknown]
  - Mobility decreased [Unknown]
  - Decreased appetite [Unknown]
  - Constipation [Unknown]
  - Pneumonia [Recovering/Resolving]
  - Haemoglobin decreased [Unknown]
